FAERS Safety Report 5522569-6 (Version None)
Quarter: 2007Q4

REPORT INFORMATION
  Report Type: 
  Country: None (occurrence: None)
  Receive Date: 20071120
  Receipt Date: 20071108
  Transmission Date: 20080405
  Serious: Yes (Hospitalization)
  Sender: FDA-Public Use
  Company Number: CH-PFIZER INC-2007093889

PATIENT
  Sex: Female

DRUGS (4)
  1. EPIRUBICIN HYDROCHLORIDE [Suspect]
     Indication: BREAST CANCER IN SITU
     Route: 042
     Dates: start: 20060807, end: 20061213
  2. CYCLOPHOSPHAMIDE [Suspect]
     Indication: BREAST CANCER IN SITU
     Route: 042
     Dates: start: 20060807, end: 20061213
  3. FLUOROURACIL [Suspect]
     Indication: BREAST CANCER IN SITU
     Route: 042
     Dates: start: 20060807, end: 20061213
  4. DOCETAXEL [Suspect]
     Indication: BREAST CANCER IN SITU
     Route: 042
     Dates: start: 20060807, end: 20061213

REACTIONS (1)
  - TUBERCULOSIS [None]
